FAERS Safety Report 7736889-8 (Version None)
Quarter: 2011Q3

REPORT INFORMATION
  Report Type: 
  Country: None (occurrence: None)
  Receive Date: 20110908
  Receipt Date: 20110902
  Transmission Date: 20111222
  Serious: Yes (Other)
  Sender: FDA-Public Use
  Company Number: MY-PFIZER INC-2011206198

PATIENT
  Sex: Male

DRUGS (1)
  1. CLINDAMYCIN HCL [Suspect]

REACTIONS (4)
  - DYSPNOEA [None]
  - WHEEZING [None]
  - ANAPHYLACTIC SHOCK [None]
  - COUGH [None]
